FAERS Safety Report 11611209 (Version 2)
Quarter: 2015Q4

REPORT INFORMATION
  Report Type: Spontaneous
  Country: US (occurrence: US)
  Receive Date: 20151008
  Receipt Date: 20151210
  Transmission Date: 20160304
  Serious: Yes (Hospitalization)
  Sender: FDA-Public Use
  Company Number: US-BAYER-2015-439004

PATIENT
  Age: 26 Year
  Sex: Female
  Weight: 99.77 kg

DRUGS (2)
  1. NUVARING [Concomitant]
     Active Substance: ETHINYL ESTRADIOL\ETONOGESTREL
     Dosage: UNK
     Dates: start: 20091217, end: 20100616
  2. MIRENA [Suspect]
     Active Substance: LEVONORGESTREL
     Indication: CONTRACEPTION
     Dosage: 20 MCG/24HR, CONT
     Route: 015
     Dates: start: 20091217, end: 20100616

REACTIONS (7)
  - Injury [None]
  - Bladder perforation [None]
  - Pain [None]
  - Device issue [None]
  - Adhesion [None]
  - Uterine perforation [None]
  - Device use error [None]

NARRATIVE: CASE EVENT DATE: 20100527
